FAERS Safety Report 5003209-1 (Version None)
Quarter: 2006Q2

REPORT INFORMATION
  Report Type: 
  Country: None (occurrence: None)
  Receive Date: 20060510
  Receipt Date: 20060427
  Transmission Date: 20061013
  Serious: Yes (Other)
  Sender: FDA-Public Use
  Company Number: 2006056509

PATIENT
  Sex: Male

DRUGS (1)
  1. LYRICA [Suspect]
     Indication: ILL-DEFINED DISORDER
     Dosage: ORAL
     Route: 048

REACTIONS (4)
  - DYSSTASIA [None]
  - IDIOPATHIC THROMBOCYTOPENIC PURPURA [None]
  - MEMORY IMPAIRMENT [None]
  - SPEECH DISORDER [None]
